FAERS Safety Report 8026733 (Version 5)
Quarter: 2013Q1

REPORT INFORMATION
  Report Type: Spontaneous
  Country: US (occurrence: US)
  Receive Date: 20110708
  Receipt Date: 20130301
  Transmission Date: 20140127
  Serious: Yes (Hospitalization, Congenital Anomaly, Other)
  Sender: FDA-Public Use
  Company Number: US-PFIZER INC-2011151207

PATIENT
  Sex: Female
  Weight: 3.2 kg

DRUGS (10)
  1. ZOLOFT [Suspect]
     Indication: ANXIETY
     Dosage: UNK
     Route: 064
     Dates: start: 1996, end: 199708
  2. ZOLOFT [Suspect]
     Indication: DEPRESSION
     Dosage: 50 MG, HALF TABLET DAILY
     Route: 064
     Dates: start: 19970528, end: 199708
  3. ZOLOFT [Suspect]
     Indication: AFFECTIVE DISORDER
  4. CLARITIN [Concomitant]
     Dosage: UNK
     Route: 064
  5. TYLENOL [Concomitant]
     Dosage: UNK
     Route: 064
  6. GERITOL VITAMINS [Concomitant]
     Dosage: UNK
     Route: 064
  7. AMITRIPTYLINE [Concomitant]
     Dosage: UNK
     Route: 064
  8. PRENATAL VITAMINS [Concomitant]
     Dosage: UNK
     Route: 064
  9. SUDAFED [Concomitant]
     Dosage: UNK
     Route: 064
  10. AMOXICILLIN [Concomitant]
     Dosage: UNK
     Route: 064

REACTIONS (13)
  - Foetal exposure during pregnancy [Unknown]
  - Fallot^s tetralogy [Not Recovered/Not Resolved]
  - Ventricular septal defect [Recovered/Resolved]
  - Pulmonary valve stenosis [Not Recovered/Not Resolved]
  - Cytogenetic abnormality [Unknown]
  - Pulmonary valve incompetence [Not Recovered/Not Resolved]
  - Congenital pulmonary artery anomaly [Unknown]
  - Atrial septal defect [Unknown]
  - Malformation venous [Not Recovered/Not Resolved]
  - Right aortic arch [Not Recovered/Not Resolved]
  - Otitis media [Recovered/Resolved]
  - Pulmonary valve incompetence [Unknown]
  - Dilatation ventricular [Unknown]
